FAERS Safety Report 5360986-8 (Version None)
Quarter: 2007Q2

REPORT INFORMATION
  Report Type: 
  Country: None (occurrence: None)
  Receive Date: 20070618
  Receipt Date: 20070606
  Transmission Date: 20071010
  Serious: Yes (Life-Threatening, Hospitalization)
  Sender: FDA-Public Use
  Company Number: JP-PFIZER INC-2007039614

PATIENT
  Sex: Female
  Weight: 52.6 kg

DRUGS (1)
  1. SULPERAZON [Suspect]
     Route: 042
     Dates: start: 20070228, end: 20070508

REACTIONS (1)
  - SHOCK [None]
